FAERS Safety Report 6313058-X (Version None)
Quarter: 2009Q3

REPORT INFORMATION
  Report Type: 
  Country: None (occurrence: None)
  Receive Date: 20090814
  Receipt Date: 20090803
  Transmission Date: 20100115
  Serious: Yes (Hospitalization)
  Sender: FDA-Public Use
  Company Number: 001240

PATIENT
  Sex: Female
  Weight: 74.8 kg

DRUGS (18)
  1. ROTIGOTINE [Suspect]
     Indication: PARKINSON'S DISEASE
     Dosage: 6 MG QD TRANSDERMAL
     Route: 062
     Dates: start: 20080101
  2. SINEMET [Concomitant]
  3. LASIX /0032601/ [Concomitant]
  4. FOLIC ACID [Concomitant]
  5. TOPROL-XL [Concomitant]
  6. VERAPAMIL [Concomitant]
  7. ASPIRIN [Concomitant]
  8. COLACE [Concomitant]
  9. OMEPRAZOLE [Concomitant]
  10. LIPITOR [Concomitant]
  11. ENULOSE [Concomitant]
  12. VICODIN [Concomitant]
  13. ASCORBIC ACID [Concomitant]
  14. CENTRUM SILVER /01292501/ [Concomitant]
  15. LOVAZA [Concomitant]
  16. VITAMIN B-12 [Concomitant]
  17. CRANBERRY /01512301/ [Concomitant]
  18. OXYGEN [Concomitant]

REACTIONS (8)
  - BALANCE DISORDER [None]
  - COORDINATION ABNORMAL [None]
  - INAPPROPRIATE SCHEDULE OF DRUG ADMINISTRATION [None]
  - KNEE ARTHROPLASTY [None]
  - MUSCLE RIGIDITY [None]
  - PARAESTHESIA [None]
  - URINARY TRACT INFECTION [None]
  - VISUAL IMPAIRMENT [None]
